FAERS Safety Report 9781211 (Version 3)
Quarter: 2014Q3

REPORT INFORMATION
  Report Type: Report from Study
  Country: JP (occurrence: JP)
  Receive Date: 20131224
  Receipt Date: 20140916
  Transmission Date: 20150326
  Serious: Yes (Life-Threatening)
  Sender: FDA-Public Use
  Company Number: PHHO2013JP016555

PATIENT
  Age: 72 Year
  Sex: Female
  Weight: 49 kg

DRUGS (4)
  1. WADACALCIUM [Concomitant]
     Active Substance: CALCIUM CITRATE\CALCIUM LACTATE\CALCIUM PHOSPHATE
     Dosage: 4 DF, QD
     Route: 048
     Dates: start: 20120403, end: 20140115
  2. WADACALCIUM [Concomitant]
     Active Substance: CALCIUM CITRATE\CALCIUM LACTATE\CALCIUM PHOSPHATE
     Dosage: UNK
     Route: 061
     Dates: start: 20131211, end: 20140115
  3. ACLASTA [Suspect]
     Active Substance: ZOLEDRONIC ACID
     Dosage: 5.33 MG, 1/1 YEAR
     Route: 041
     Dates: start: 20130618, end: 20130618
  4. ACLASTA [Suspect]
     Active Substance: ZOLEDRONIC ACID
     Indication: OSTEOPOROSIS
     Dosage: 5.33 MG, 1/1 YEAR
     Route: 041
     Dates: start: 20120611, end: 20120611

REACTIONS (1)
  - Lung adenocarcinoma [Not Recovered/Not Resolved]

NARRATIVE: CASE EVENT DATE: 20131212
